FAERS Safety Report 8604947-1 (Version None)
Quarter: 2012Q3

REPORT INFORMATION
  Report Type: 
  Country: None (occurrence: None)
  Receive Date: 20120820
  Receipt Date: 20120817
  Transmission Date: 20120928
  Serious: Yes (Other)
  Sender: FDA-Public Use
  Company Number: JP-PFIZER INC-2012202327

PATIENT

DRUGS (1)
  1. SOLU-CORTEF [Suspect]
     Dosage: 500 MG, 1X/DAY
     Route: 042

REACTIONS (1)
  - SHOCK [None]
